FAERS Safety Report 6309942-3 (Version None)
Quarter: 2009Q3

REPORT INFORMATION
  Report Type: 
  Country: None (occurrence: None)
  Receive Date: 20090814
  Receipt Date: 20090806
  Transmission Date: 20100115
  Serious: Yes (Other)
  Sender: FDA-Public Use
  Company Number: B0587798A

PATIENT
  Sex: Male

DRUGS (3)
  1. SERETIDE [Suspect]
     Indication: ASTHMA
     Route: 055
  2. VENTOLIN [Suspect]
     Indication: ASTHMA
     Route: 055
  3. MONTELUKAST [Concomitant]
     Route: 065

REACTIONS (3)
  - ASTHMA [None]
  - INHALATION THERAPY [None]
  - TREATMENT NONCOMPLIANCE [None]
